FAERS Safety Report 10897271 (Version 2)
Quarter: 2015Q2

REPORT INFORMATION
  Report Type: Spontaneous
  Country: US (occurrence: US)
  Receive Date: 20150309
  Receipt Date: 20150506
  Transmission Date: 20150821
  Serious: No
  Sender: FDA-Public Use
  Company Number: US-PFIZER INC-2015077842

PATIENT
  Age: 60 Year
  Sex: Female
  Weight: 45.35 kg

DRUGS (3)
  1. PHENYTOIN SODIUM. [Suspect]
     Active Substance: PHENYTOIN SODIUM
     Indication: JUVENILE MYOCLONIC EPILEPSY
     Dosage: 100 MG, 3X/DAY
  2. LAMICTAL [Concomitant]
     Active Substance: LAMOTRIGINE
     Indication: SEIZURE
     Dosage: 500 MG, DAILY
  3. PHENYTOIN SODIUM. [Suspect]
     Active Substance: PHENYTOIN SODIUM
     Indication: JUVENILE MYOCLONIC EPILEPSY
     Dosage: 100 MG, 3X/DAY

REACTIONS (3)
  - Pruritus [Unknown]
  - Balance disorder [Unknown]
  - Drug ineffective [Unknown]
